FAERS Safety Report 11270979 (Version 2)
Quarter: 2016Q4

REPORT INFORMATION
  Report Type: Spontaneous
  Country: US (occurrence: US)
  Receive Date: 20150714
  Receipt Date: 20161108
  Transmission Date: 20170206
  Serious: Yes (Other)
  Sender: FDA-Public Use
  Company Number: US-ELI_LILLY_AND_COMPANY-US201507001602

PATIENT
  Sex: Female

DRUGS (2)
  1. CYMBALTA [Suspect]
     Active Substance: DULOXETINE HYDROCHLORIDE
     Indication: PAIN
     Dosage: 1 DF, UNKNOWN
     Route: 065
     Dates: end: 20140628
  2. CYMBALTA [Suspect]
     Active Substance: DULOXETINE HYDROCHLORIDE
     Indication: DEPRESSION
     Dosage: UNK UNK, UNKNOWN
     Route: 065
     Dates: start: 20140802

REACTIONS (29)
  - Memory impairment [Unknown]
  - Suicidal ideation [Unknown]
  - Agitation [Unknown]
  - Migraine [Unknown]
  - Irritability [Unknown]
  - Nausea [Unknown]
  - Affect lability [Unknown]
  - Hyperhidrosis [Unknown]
  - Seizure [Unknown]
  - Hallucination [Unknown]
  - Sensory disturbance [Unknown]
  - Paraesthesia [Unknown]
  - Depressed mood [Unknown]
  - Decreased appetite [Unknown]
  - Influenza like illness [Unknown]
  - Vertigo [Unknown]
  - Nightmare [Unknown]
  - Cold sweat [Unknown]
  - Drug withdrawal syndrome [Unknown]
  - Disturbance in attention [Unknown]
  - Pain [Unknown]
  - Confusional state [Unknown]
  - Aggression [Unknown]
  - Fatigue [Unknown]
  - Lethargy [Unknown]
  - Vomiting [Unknown]
  - Diarrhoea [Unknown]
  - Dizziness [Unknown]
  - Insomnia [Unknown]

NARRATIVE: CASE EVENT DATE: 2014
